FAERS Safety Report 5782722-3 (Version None)
Quarter: 2008Q2

REPORT INFORMATION
  Report Type: 
  Country: None (occurrence: None)
  Receive Date: 20080624
  Receipt Date: 20080401
  Transmission Date: 20081010
  Serious: No
  Sender: FDA-Public Use
  Company Number: US-BAYER-200715276NA

PATIENT
  Age: 53 Year
  Sex: Female
  Weight: 70 kg

DRUGS (3)
  1. CLIMARA PRO [Suspect]
     Indication: OSTEOPOROSIS
     Route: 062
     Dates: start: 20070928
  2. LEVOTHYROXINE SODIUM [Concomitant]
     Indication: DRUG USE FOR UNKNOWN INDICATION
     Route: 048
  3. CALCIUM [Concomitant]
     Indication: DRUG USE FOR UNKNOWN INDICATION

REACTIONS (4)
  - APPLICATION SITE PRURITUS [None]
  - HYPOAESTHESIA ORAL [None]
  - PARAESTHESIA ORAL [None]
  - PRURITUS [None]
